FAERS Safety Report 24903152 (Version 1)
Quarter: 2025Q1

REPORT INFORMATION
  Report Type: Spontaneous
  Country: JP (occurrence: JP)
  Receive Date: 20250130
  Receipt Date: 20250130
  Transmission Date: 20250409
  Serious: Yes (Other)
  Sender: RANBAXY
  Company Number: JP-SUN PHARMACEUTICAL INDUSTRIES LTD-2025RR-488815

PATIENT
  Age: 63 Year
  Sex: Female

DRUGS (12)
  1. PREDNISOLONE [Suspect]
     Active Substance: PREDNISOLONE
     Indication: Drug eruption
     Dosage: 50 MILLIGRAM, DAILY
     Route: 065
  2. PREDNISOLONE [Suspect]
     Active Substance: PREDNISOLONE
     Dosage: 50 MILLIGRAM, DAILY
     Route: 065
  3. ACETAZOLAMIDE [Suspect]
     Active Substance: ACETAZOLAMIDE
     Indication: Drug eruption
     Route: 048
  4. TOLVAPTAN [Suspect]
     Active Substance: TOLVAPTAN
     Indication: Drug eruption
     Route: 048
  5. CARVEDILOL [Suspect]
     Active Substance: CARVEDILOL
     Indication: Drug eruption
     Route: 065
  6. ATORVASTATIN [Suspect]
     Active Substance: ATORVASTATIN
     Indication: Drug eruption
     Route: 048
  7. SODIUM BICARBONATE [Suspect]
     Active Substance: SODIUM BICARBONATE
     Indication: Drug eruption
     Route: 048
  8. AZOSEMIDE [Suspect]
     Active Substance: AZOSEMIDE
     Indication: Drug eruption
     Route: 048
  9. TETRAFERRIC TRICITRATE DECAHYDRATE [Suspect]
     Active Substance: TETRAFERRIC TRICITRATE DECAHYDRATE
     Indication: Drug eruption
     Route: 048
  10. LINAGLIPTIN [Suspect]
     Active Substance: LINAGLIPTIN
     Indication: Drug eruption
     Route: 048
  11. NALFURAFINE [Suspect]
     Active Substance: NALFURAFINE
     Indication: Drug eruption
     Route: 065
  12. AZILSARTAN KAMEDOXOMIL [Suspect]
     Active Substance: AZILSARTAN KAMEDOXOMIL
     Indication: Drug eruption
     Route: 065

REACTIONS (2)
  - Toxic epidermal necrolysis [Unknown]
  - Disseminated cryptococcosis [Unknown]
